FAERS Safety Report 4610246-5 (Version None)
Quarter: 2005Q1

REPORT INFORMATION
  Report Type: 
  Country: None (occurrence: None)
  Receive Date: 20050307
  Receipt Date: 20050218
  Transmission Date: 20050727
  Serious: Yes (Life-Threatening)
  Sender: FDA-Public Use
  Company Number: 2005-00450

PATIENT
  Age: 66 Year
  Sex: Male

DRUGS (1)
  1. IMMUCYST (BCG -  IT (CONNAUGHT), AVENTIS PASTEUR LTD. [Suspect]
     Indication: BLADDER CANCER
     Dosage: B.IN., BLADDER
     Dates: start: 20041220

REACTIONS (2)
  - BOVINE TUBERCULOSIS [None]
  - MILIARY PNEUMONIA [None]
